FAERS Safety Report 8129610-5 (Version None)
Quarter: 2012Q1

REPORT INFORMATION
  Report Type: 
  Country: None (occurrence: None)
  Receive Date: 20120210
  Receipt Date: 20120208
  Transmission Date: 20120608
  Serious: Yes (Congenital Anomaly, Other)
  Sender: FDA-Public Use
  Company Number: AT-VIIV HEALTHCARE LIMITED-B0743764A

PATIENT

DRUGS (5)
  1. LOPINAVIR/RITONAVIR [Suspect]
     Indication: HIV INFECTION
     Route: 064
  2. ZIDOVUDINE [Suspect]
     Indication: HIV INFECTION
     Route: 064
  3. LAMIVUDINE (EPIVIR HBV) [Suspect]
     Indication: HIV INFECTION
     Route: 064
  4. T-20 [Suspect]
     Indication: HIV INFECTION
     Route: 064
  5. RALTEGRAVIR [Suspect]
     Route: 064

REACTIONS (2)
  - PLAGIOCEPHALY [None]
  - FOETAL EXPOSURE DURING PREGNANCY [None]
